FAERS Safety Report 13149097 (Version 2)
Quarter: 2017Q2

REPORT INFORMATION
  Report Type: Spontaneous
  Country: BR (occurrence: BR)
  Receive Date: 20170125
  Receipt Date: 20170518
  Transmission Date: 20170830
  Serious: Yes (Other)
  Sender: FDA-Public Use
  Company Number: BR-ABBVIE-17P-020-1852312-00

PATIENT
  Age: 12 Year
  Sex: Female
  Weight: 29 kg

DRUGS (5)
  1. DEPAKOTE [Suspect]
     Active Substance: DIVALPROEX SODIUM
     Indication: EPILEPSY
     Route: 048
     Dates: start: 2010
  2. TOPIRAMATE. [Concomitant]
     Active Substance: TOPIRAMATE
     Indication: EPILEPSY
     Route: 048
     Dates: start: 2010
  3. DEPAKOTE [Suspect]
     Active Substance: DIVALPROEX SODIUM
     Route: 048
  4. RISPERIDONE. [Concomitant]
     Active Substance: RISPERIDONE
     Indication: DISTURBANCE IN ATTENTION
     Dosage: 0.4ML, USING SYRINGE
     Route: 048
  5. DEPAKOTE ER [Suspect]
     Active Substance: DIVALPROEX SODIUM
     Indication: EPILEPSY
     Route: 048
     Dates: start: 20170116

REACTIONS (5)
  - Seizure [Recovered/Resolved]
  - Drug level decreased [Unknown]
  - Product use issue [Unknown]
  - Bone disorder [Unknown]
  - Off label use [Unknown]

NARRATIVE: CASE EVENT DATE: 20170115
